FAERS Safety Report 6463677-5 (Version None)
Quarter: 2009Q4

REPORT INFORMATION
  Report Type: 
  Country: None (occurrence: None)
  Receive Date: 20091201
  Receipt Date: 20091123
  Transmission Date: 20100525
  Serious: Yes (Hospitalization)
  Sender: FDA-Public Use
  Company Number: PHEH2009US06313

PATIENT
  Sex: Male

DRUGS (9)
  1. EXJADE [Suspect]
     Indication: MYELODYSPLASTIC SYNDROME
     Dosage: 1000 MG, BID
     Route: 048
     Dates: start: 20090529
  2. MIRALAX [Concomitant]
     Indication: DIARRHOEA
     Dosage: FIVE TIMES DAILY
  3. STOOL SOFTENER [Concomitant]
  4. RAMIPRIL [Concomitant]
     Indication: HYPERTENSION
     Dosage: 5 MG, DAILY
     Route: 048
  5. AMLODIPINE [Concomitant]
     Dosage: 5 MG, DAILY
     Route: 048
  6. ASPIRIN [Concomitant]
  7. GABAPENTIN [Concomitant]
     Dosage: 300 MG, BID
     Route: 048
  8. ALBUTEROL SULFATE AND IPRATROPIUM BROMIDE [Concomitant]
     Dosage: 2 PUFFS EVERY 4 HOURS PRN SHORTNESS OF BREATH
  9. ATORVASTATIN [Concomitant]
     Dosage: 20 MG, QHS
     Route: 048

REACTIONS (15)
  - DIARRHOEA [None]
  - DIARRHOEA HAEMORRHAGIC [None]
  - GASTROINTESTINAL HAEMORRHAGE [None]
  - GASTROINTESTINAL INFECTION [None]
  - HEART RATE INCREASED [None]
  - INFECTION [None]
  - LOSS OF CONSCIOUSNESS [None]
  - MELAENA [None]
  - PETECHIAE [None]
  - PYREXIA [None]
  - RASH [None]
  - RASH PAPULAR [None]
  - RECTAL HAEMORRHAGE [None]
  - THROMBOCYTOPENIA [None]
  - URINARY TRACT INFECTION [None]
